FAERS Safety Report 4645083-9 (Version None)
Quarter: 2005Q2

REPORT INFORMATION
  Report Type: 
  Country: None (occurrence: None)
  Receive Date: 20050422
  Receipt Date: 20050413
  Transmission Date: 20051028
  Serious: Yes (Hospitalization)
  Sender: FDA-Public Use
  Company Number: 213664

PATIENT
  Age: 70 Year
  Sex: Male
  Weight: 83.4 kg

DRUGS (7)
  1. AVASTIN [Suspect]
     Indication: COLORECTAL CANCER METASTATIC
     Dosage: 5 MG, KG, Q2W, INTRAVENOUS
     Route: 042
     Dates: start: 20040929
  2. PHENERGAN [Suspect]
  3. PROCRIT (EPOETIN ALFA) [Concomitant]
  4. DURAGESIC-100 [Concomitant]
  5. PERCOCET [Concomitant]
  6. ATIVAN [Concomitant]
  7. NHOH MOUTHWASH [Concomitant]

REACTIONS (3)
  - ANAEMIA [None]
  - RENAL FAILURE ACUTE [None]
  - URETERIC OBSTRUCTION [None]
